FAERS Safety Report 9265028 (Version 2)
Quarter: 2013Q2

REPORT INFORMATION
  Report Type: Spontaneous
  Country: US (occurrence: None)
  Receive Date: 20130425
  Receipt Date: 20130611
  Transmission Date: 20140414
  Serious: Yes (Other)
  Sender: FDA-Public Use
  Company Number: 2013P1004981

PATIENT
  Age: 31 Year
  Sex: Female

DRUGS (3)
  1. MYORISAN 40 MG [Suspect]
     Dates: start: 20130115, end: 20130415
  2. ORAL CONTRACEPTIVE [Suspect]
     Dates: end: 20130415
  3. VITAMIN E [Concomitant]

REACTIONS (5)
  - Treatment noncompliance [None]
  - Incorrect dose administered [None]
  - Pregnancy on oral contraceptive [None]
  - Exposure during pregnancy [None]
  - Inhibitory drug interaction [None]
